FAERS Safety Report 8220846-1 (Version None)
Quarter: 2012Q1

REPORT INFORMATION
  Report Type: 
  Country: None (occurrence: None)
  Receive Date: 20120320
  Receipt Date: 20120319
  Transmission Date: 20120608
  Serious: Yes (Other)
  Sender: FDA-Public Use
  Company Number: US-PFIZER INC-2012071265

PATIENT
  Sex: Female
  Weight: 127 kg

DRUGS (8)
  1. LIPITOR [Suspect]
     Indication: BLOOD CHOLESTEROL ABNORMAL
     Dosage: UNK, DAILY
     Route: 048
     Dates: start: 20120201
  2. AZITHROMYCIN [Concomitant]
     Indication: SINUSITIS
  3. AZITHROMYCIN [Concomitant]
     Indication: BRONCHITIS
     Dosage: UNK
  4. METOPROLOL [Concomitant]
     Indication: BLOOD PRESSURE ABNORMAL
     Dosage: 50 MG, DAILY
  5. LEVOTHYROXINE [Concomitant]
     Indication: BLOOD PRESSURE ABNORMAL
     Dosage: 150 MG, DAILY
  6. IBUPROFEN [Concomitant]
     Indication: RHEUMATOID ARTHRITIS
     Dosage: 800 MG, TWO TO THREE TIMES A DAY
  7. OXYBUTYNIN [Concomitant]
     Indication: BLOOD PRESSURE ABNORMAL
     Dosage: 10 MG, DAILY
  8. SIMVASTATIN [Concomitant]
     Indication: BLOOD PRESSURE ABNORMAL
     Dosage: 40 MG, DAILY

REACTIONS (2)
  - BRONCHITIS [None]
  - ARTHRITIS [None]
